FAERS Safety Report 8885783 (Version 2)
Quarter: 2012Q4

REPORT INFORMATION
  Report Type: 
  Country: DK (occurrence: DK)
  Receive Date: 20121102
  Receipt Date: 20121113
  Transmission Date: 20130627
  Serious: Yes (Hospitalization)
  Sender: FDA-Public Use
  Company Number: DK-PFIZER INC-2012271423

PATIENT
  Age: 31 Year
  Sex: Female

DRUGS (6)
  1. RAMIPRIL [Suspect]
     Indication: HYPERTENSION
     Dosage: UNK
     Route: 048
     Dates: start: 20090709, end: 20100126
  2. METFORMIN [Suspect]
     Indication: DIABETES
     Route: 048
     Dates: start: 20090709, end: 20100126
  3. METOPROLOL [Concomitant]
     Indication: HYPERTENSION
     Route: 048
     Dates: start: 20090709, end: 20100126
  4. METHYLDOPA [Concomitant]
     Dates: start: 20100126, end: 20100210
  5. NOVORAPID [Concomitant]
     Indication: TYPE 2 DIABETES MELLITUS
     Route: 058
     Dates: start: 20100126, end: 20100210
  6. PROTAPHANE HM [Concomitant]
     Indication: TYPE 2 DIABETES MELLITUS
     Route: 058
     Dates: start: 20100126, end: 20100210

REACTIONS (1)
  - HELLP syndrome [Unknown]
